FAERS Safety Report 23210696 (Version 1)
Quarter: 2023Q4

REPORT INFORMATION
  Report Type: Spontaneous
  Country: FR (occurrence: FR)
  Receive Date: 20231121
  Receipt Date: 20231121
  Transmission Date: 20240109
  Serious: Yes (Other)
  Sender: FDA-Public Use
  Company Number: FR-BIOGARAN-B23001967

PATIENT
  Sex: Female

DRUGS (1)
  1. SPIRIVA [Suspect]
     Active Substance: TIOTROPIUM BROMIDE MONOHYDRATE
     Indication: Product used for unknown indication
     Dosage: 2 PER DAY FOR 6 DAYS
     Route: 048

REACTIONS (4)
  - Haematochezia [Unknown]
  - Fatigue [Unknown]
  - Incorrect route of product administration [Unknown]
  - Medication error [Unknown]
